FAERS Safety Report 7747369-8 (Version None)
Quarter: 2011Q3

REPORT INFORMATION
  Report Type: 
  Country: None (occurrence: None)
  Receive Date: 20110913
  Receipt Date: 20110909
  Transmission Date: 20111222
  Serious: Yes (Death)
  Sender: FDA-Public Use
  Company Number: US-GLAXOSMITHKLINE-A0926792A

PATIENT
  Age: 66 Year
  Sex: Male

DRUGS (2)
  1. UNKNOWN [Concomitant]
  2. ARIXTRA [Suspect]
     Indication: PULMONARY EMBOLISM
     Route: 065

REACTIONS (1)
  - PANCREATIC CARCINOMA [None]
